FAERS Safety Report 8273638-1 (Version None)
Quarter: 2012Q2

REPORT INFORMATION
  Report Type: 
  Country: None (occurrence: None)
  Receive Date: 20120411
  Receipt Date: 20120214
  Transmission Date: 20120825
  Serious: No
  Sender: FDA-Public Use
  Company Number: US-TEVA-322689USA

PATIENT
  Sex: Female
  Weight: 91.254 kg

DRUGS (4)
  1. ESCITALOPRAM OXALATE [Concomitant]
     Indication: DEPRESSION
     Dosage: QD
     Route: 048
  2. METFORMIN HCL [Concomitant]
     Indication: DIABETES MELLITUS
     Route: 048
  3. NUVIGIL [Suspect]
     Indication: DEPRESSION
     Dosage: QD
     Route: 048
     Dates: start: 20120101
  4. GLYBURIDE [Concomitant]
     Indication: DIABETES MELLITUS
     Route: 048

REACTIONS (4)
  - INSOMNIA [None]
  - OFF LABEL USE [None]
  - PSYCHOMOTOR HYPERACTIVITY [None]
  - DRUG INEFFECTIVE [None]
